FAERS Safety Report 4970780-5 (Version None)
Quarter: 2006Q2

REPORT INFORMATION
  Report Type: 
  Country: None (occurrence: None)
  Receive Date: 20060412
  Receipt Date: 20060405
  Transmission Date: 20061013
  Serious: Yes (Hospitalization)
  Sender: FDA-Public Use
  Company Number: US-BRISTOL-MYERS SQUIBB COMPANY-13337878

PATIENT
  Age: 85 Year
  Sex: Male

DRUGS (9)
  1. SINEMET [Suspect]
     Indication: PARKINSON'S DISEASE
     Dosage: TABLETS
     Route: 048
  2. NAMENDA [Interacting]
     Indication: COGNITIVE DISORDER
     Route: 048
     Dates: start: 20050301, end: 20060301
  3. HYTRIN [Interacting]
     Route: 048
     Dates: end: 20060301
  4. RAZADYNE [Concomitant]
     Dates: end: 20060301
  5. WELLBUTRIN [Concomitant]
  6. PROVIGIL [Concomitant]
  7. PRIMIDONE [Concomitant]
  8. MIRAPEX [Concomitant]
     Dosage: TABLET
     Route: 048
  9. OS-CAL [Concomitant]

REACTIONS (4)
  - DRUG INTERACTION [None]
  - HYPOTENSION [None]
  - MENINGIOMA BENIGN [None]
  - NEOPLASM PROGRESSION [None]
